FAERS Safety Report 9196703 (Version 1)
Quarter: 2013Q1

REPORT INFORMATION
  Report Type: Spontaneous
  Country: US (occurrence: US)
  Receive Date: 20130328
  Receipt Date: 20130328
  Transmission Date: 20140127
  Serious: Yes (Other)
  Sender: FDA-Public Use
  Company Number: US-JNJFOC-20130312084

PATIENT
  Age: 56 Year
  Sex: Male
  Weight: 108.86 kg

DRUGS (2)
  1. XARELTO [Suspect]
     Indication: THROMBOSIS PROPHYLAXIS
     Dosage: NDC NO:50458058010
     Route: 048
     Dates: start: 20121128, end: 20121202
  2. XARELTO [Suspect]
     Indication: KNEE ARTHROPLASTY
     Dosage: NDC NO:50458058010
     Route: 048
     Dates: start: 20121128, end: 20121202

REACTIONS (2)
  - Hot flush [Recovered/Resolved]
  - Hyperhidrosis [Recovered/Resolved]
